FAERS Safety Report 24748665 (Version 1)
Quarter: 2024Q4

REPORT INFORMATION
  Report Type: Spontaneous
  Country: US (occurrence: None)
  Receive Date: 20241217
  Receipt Date: 20241217
  Transmission Date: 20250114
  Serious: Yes (Death, Life-Threatening, Hospitalization)
  Sender: Public
  Company Number: None

PATIENT
  Age: 73 Year
  Sex: Female
  Weight: 130 kg

DRUGS (3)
  1. OZEMPIC [Suspect]
     Active Substance: SEMAGLUTIDE
     Indication: Diabetes mellitus
     Dosage: OTHER FREQUENCY : UNKNOWN;?
     Route: 030
  2. OZEMPIC [Suspect]
     Active Substance: SEMAGLUTIDE
     Indication: Obesity
  3. RYBELSUS [Suspect]
     Active Substance: SEMAGLUTIDE
     Dates: start: 20240901, end: 20240930

REACTIONS (14)
  - Decreased appetite [None]
  - Constipation [None]
  - Fall [None]
  - Dyspnoea [None]
  - Musculoskeletal chest pain [None]
  - Influenza [None]
  - Pancreatitis acute [None]
  - Pancreatitis necrotising [None]
  - Acute kidney injury [None]
  - Pancreatic carcinoma [None]
  - Atrial fibrillation [None]
  - Hypotension [None]
  - Hypovolaemia [None]
  - Hypoxia [None]

NARRATIVE: CASE EVENT DATE: 20241111
